FAERS Safety Report 5821236-9 (Version None)
Quarter: 2008Q3

REPORT INFORMATION
  Report Type: 
  Country: None (occurrence: None)
  Receive Date: 20080723
  Receipt Date: 20080716
  Transmission Date: 20090109
  Serious: No
  Sender: FDA-Public Use
  Company Number: APP200800680

PATIENT
  Age: 49 Year
  Sex: Male
  Weight: 133.8111 kg

DRUGS (2)
  1. HEPARIN SODIUM INJECTION [Suspect]
     Indication: ANGIOGRAM CEREBRAL
     Dosage: 11000 UNITS TOTAL IN DIVIDED DOSES, INTRAVENOUS
     Route: 042
     Dates: start: 20080524, end: 20080524
  2. HEPARIN SODIUM INJECTION [Suspect]
     Indication: STENT PLACEMENT
     Dosage: 11000 UNITS TOTAL IN DIVIDED DOSES, INTRAVENOUS
     Route: 042
     Dates: start: 20080524, end: 20080524

REACTIONS (2)
  - DRUG INEFFECTIVE [None]
  - PHARMACEUTICAL PRODUCT COMPLAINT [None]
